FAERS Safety Report 8853796 (Version 2)
Quarter: 2013Q1

REPORT INFORMATION
  Report Type: Spontaneous
  Country: GB (occurrence: GB)
  Receive Date: 20121022
  Receipt Date: 20130228
  Transmission Date: 20140127
  Serious: Yes (Death)
  Sender: FDA-Public Use
  Company Number: PHFR2012GB005515

PATIENT
  Age: 64 Year
  Sex: Female

DRUGS (6)
  1. CLOZARIL [Suspect]
     Indication: SCHIZOPHRENIA
     Dosage: 400 MG, DAILY
     Route: 048
     Dates: start: 20081014
  2. CLOMIPRAMINE [Concomitant]
     Indication: DEPRESSION
     Dosage: 50 MG, QD
     Route: 048
  3. PREGABALIN [Concomitant]
     Indication: ANXIETY
     Dosage: 100 MG, BID
     Route: 048
  4. PIRENZEPINE [Concomitant]
     Indication: SALIVARY HYPERSECRETION
     Dosage: 50 MG, BID
     Route: 048
  5. FOLIC ACID [Concomitant]
     Indication: ANAEMIA
     Dosage: 1 DF, QD
     Route: 048
  6. ASPIRIN [Concomitant]
     Dosage: 75 MG, QD
     Route: 048

REACTIONS (1)
  - Death [Fatal]
